FAERS Safety Report 12579057 (Version 4)
Quarter: 2016Q3

REPORT INFORMATION
  Report Type: Spontaneous
  Country: US (occurrence: US)
  Receive Date: 20160721
  Receipt Date: 20160808
  Transmission Date: 20161109
  Serious: No
  Sender: FDA-Public Use
  Company Number: US-BEH-2016063022

PATIENT
  Age: 16 Year
  Sex: Male
  Weight: 60 kg

DRUGS (11)
  1. EPIPEN [Concomitant]
     Active Substance: EPINEPHRINE
  2. PROAIR HFA [Concomitant]
     Active Substance: ALBUTEROL SULFATE
  3. TAZORAC [Concomitant]
     Active Substance: TAZAROTENE
  4. HIZENTRA [Suspect]
     Active Substance: HUMAN IMMUNOGLOBULIN G
     Indication: IMMUNODEFICIENCY COMMON VARIABLE
     Route: 058
  5. SOLODYN [Concomitant]
     Active Substance: MINOCYCLINE HYDROCHLORIDE
  6. LIDOCAINE. [Concomitant]
     Active Substance: LIDOCAINE
  7. LIDOCAINE/PRILOCAINE [Concomitant]
     Active Substance: LIDOCAINE\PRILOCAINE
  8. HIZENTRA [Suspect]
     Active Substance: HUMAN IMMUNOGLOBULIN G
     Route: 058
  9. SINGULAIR [Concomitant]
     Active Substance: MONTELUKAST SODIUM
  10. HIZENTRA [Suspect]
     Active Substance: HUMAN IMMUNOGLOBULIN G
     Route: 058
  11. DIPHENHYDRAMINE. [Concomitant]
     Active Substance: DIPHENHYDRAMINE

REACTIONS (1)
  - Drug dose omission [Unknown]

NARRATIVE: CASE EVENT DATE: 20160327
